FAERS Safety Report 20687697 (Version 3)
Quarter: 2022Q3

REPORT INFORMATION
  Report Type: Spontaneous
  Country: US (occurrence: US)
  Receive Date: 20220408
  Receipt Date: 20220712
  Transmission Date: 20221027
  Serious: Yes (Other)
  Sender: FDA-Public Use
  Company Number: US-JNJFOC-20220408695

PATIENT
  Age: 66 Year
  Sex: Female

DRUGS (6)
  1. ELMIRON [Suspect]
     Active Substance: PENTOSAN POLYSULFATE SODIUM
     Indication: Cystitis interstitial
     Dosage: 3 TIMES PER DAY; 100 MG
     Route: 048
     Dates: start: 2011, end: 2013
  2. ELMIRON [Suspect]
     Active Substance: PENTOSAN POLYSULFATE SODIUM
     Dosage: 3 TIMES PER DAY; 100 MG
     Route: 048
     Dates: start: 2014, end: 2016
  3. ELMIRON [Suspect]
     Active Substance: PENTOSAN POLYSULFATE SODIUM
     Dosage: 3 TIMES PER DAY; 100 MG
     Route: 048
     Dates: start: 2017, end: 2018
  4. ELMIRON [Suspect]
     Active Substance: PENTOSAN POLYSULFATE SODIUM
     Dosage: 3 TIMES PER DAY; 100 MG
     Route: 048
     Dates: start: 2019, end: 2019
  5. IBUPROFEN [Concomitant]
     Active Substance: IBUPROFEN
     Indication: Spinal operation
     Dates: start: 2010
  6. IMITREX [Concomitant]
     Active Substance: SUMATRIPTAN SUCCINATE
     Indication: Migraine
     Dates: start: 2017

REACTIONS (2)
  - Maculopathy [Unknown]
  - Macular degeneration [Unknown]

NARRATIVE: CASE EVENT DATE: 20201216
